FAERS Safety Report 22287918 (Version 1)
Quarter: 2023Q2

REPORT INFORMATION
  Report Type: Spontaneous
  Country: US (occurrence: US)
  Receive Date: 20230505
  Receipt Date: 20230505
  Transmission Date: 20230721
  Serious: Yes (Other)
  Sender: FDA-Public Use
  Company Number: US-ROCHE-2143693

PATIENT
  Age: 52 Year
  Sex: Female
  Weight: 68.099 kg

DRUGS (72)
  1. CLONAZEPAM [Suspect]
     Active Substance: CLONAZEPAM
     Indication: Product used for unknown indication
     Dosage: TAKES MORNING AND NIGHT COULD NOT SEE THE MANUFACTURER^S NAME ON THE BOTTLE,?TWICE A DAY
     Route: 048
     Dates: start: 202207
  2. OCREVUS [Concomitant]
     Active Substance: OCRELIZUMAB
     Indication: Primary progressive multiple sclerosis
     Dosage: 6 MONTHS
     Route: 042
     Dates: start: 2015
  3. OCREVUS [Concomitant]
     Active Substance: OCRELIZUMAB
     Indication: Relapsing-remitting multiple sclerosis
     Dosage: 6 MONTHS
     Route: 042
     Dates: start: 2015
  4. OCREVUS [Concomitant]
     Active Substance: OCRELIZUMAB
     Indication: Secondary progressive multiple sclerosis
     Dosage: 6 MONTHS
     Route: 042
     Dates: start: 2015
  5. OCREVUS [Concomitant]
     Active Substance: OCRELIZUMAB
     Indication: Primary progressive multiple sclerosis
     Dosage: 6 MONTHS
     Route: 042
     Dates: start: 2016
  6. OCREVUS [Concomitant]
     Active Substance: OCRELIZUMAB
     Indication: Relapsing-remitting multiple sclerosis
     Dosage: 6 MONTHS
     Route: 042
     Dates: start: 2016
  7. OCREVUS [Concomitant]
     Active Substance: OCRELIZUMAB
     Indication: Secondary progressive multiple sclerosis
     Dosage: 6 MONTHS
     Route: 042
     Dates: start: 2016
  8. OCREVUS [Concomitant]
     Active Substance: OCRELIZUMAB
     Indication: Primary progressive multiple sclerosis
     Route: 042
     Dates: start: 201706
  9. OCREVUS [Concomitant]
     Active Substance: OCRELIZUMAB
     Indication: Relapsing-remitting multiple sclerosis
     Route: 042
     Dates: start: 201706
  10. OCREVUS [Concomitant]
     Active Substance: OCRELIZUMAB
     Indication: Secondary progressive multiple sclerosis
     Route: 042
     Dates: start: 201706
  11. OCREVUS [Concomitant]
     Active Substance: OCRELIZUMAB
     Indication: Primary progressive multiple sclerosis
     Dosage: HALF THE DOSE INFUSION
     Route: 042
     Dates: start: 20180611
  12. OCREVUS [Concomitant]
     Active Substance: OCRELIZUMAB
     Indication: Relapsing-remitting multiple sclerosis
     Dosage: HALF THE DOSE INFUSION
     Route: 042
     Dates: start: 20180611
  13. OCREVUS [Concomitant]
     Active Substance: OCRELIZUMAB
     Indication: Secondary progressive multiple sclerosis
     Dosage: HALF THE DOSE INFUSION
     Route: 042
     Dates: start: 20180611
  14. OCREVUS [Concomitant]
     Active Substance: OCRELIZUMAB
     Indication: Primary progressive multiple sclerosis
     Dosage: ON DAY 1 AND DAY 15 SECOND HALF THE DOSE INFUSION
     Route: 042
     Dates: start: 20180625
  15. OCREVUS [Concomitant]
     Active Substance: OCRELIZUMAB
     Indication: Relapsing-remitting multiple sclerosis
     Dosage: ON DAY 1 AND DAY 15 SECOND HALF THE DOSE INFUSION
     Route: 042
     Dates: start: 20180625
  16. OCREVUS [Concomitant]
     Active Substance: OCRELIZUMAB
     Indication: Secondary progressive multiple sclerosis
     Dosage: ON DAY 1 AND DAY 15 SECOND HALF THE DOSE INFUSION
     Route: 042
     Dates: start: 20180625
  17. OCREVUS [Concomitant]
     Active Substance: OCRELIZUMAB
     Indication: Primary progressive multiple sclerosis
     Dosage: SHE WAS DUE FOR HER MOST RECENT TREATMENT
     Dates: start: 20181211
  18. OCREVUS [Concomitant]
     Active Substance: OCRELIZUMAB
     Indication: Relapsing-remitting multiple sclerosis
     Dosage: SHE WAS DUE FOR HER MOST RECENT TREATMENT
     Dates: start: 20181211
  19. OCREVUS [Concomitant]
     Active Substance: OCRELIZUMAB
     Indication: Secondary progressive multiple sclerosis
     Dosage: SHE WAS DUE FOR HER MOST RECENT TREATMENT
     Dates: start: 20181211
  20. OCREVUS [Concomitant]
     Active Substance: OCRELIZUMAB
     Indication: Primary progressive multiple sclerosis
     Route: 042
     Dates: start: 20181228
  21. OCREVUS [Concomitant]
     Active Substance: OCRELIZUMAB
     Indication: Relapsing-remitting multiple sclerosis
     Route: 042
     Dates: start: 20181228
  22. OCREVUS [Concomitant]
     Active Substance: OCRELIZUMAB
     Indication: Secondary progressive multiple sclerosis
     Route: 042
     Dates: start: 20181228
  23. OCREVUS [Concomitant]
     Active Substance: OCRELIZUMAB
     Indication: Primary progressive multiple sclerosis
     Dosage: HALF THE DOSE INFUSION,6 MONTHS
     Route: 042
     Dates: start: 20210611
  24. OCREVUS [Concomitant]
     Active Substance: OCRELIZUMAB
     Indication: Relapsing-remitting multiple sclerosis
     Dosage: HALF THE DOSE INFUSION,6 MONTHS
     Route: 042
     Dates: start: 20210611
  25. OCREVUS [Concomitant]
     Active Substance: OCRELIZUMAB
     Indication: Secondary progressive multiple sclerosis
     Dosage: HALF THE DOSE INFUSION,6 MONTHS
     Route: 042
     Dates: start: 20210611
  26. TRAMADOL [Concomitant]
     Active Substance: TRAMADOL
     Indication: Pain
  27. BOTOX [Concomitant]
     Active Substance: ONABOTULINUMTOXINA
     Indication: Tremor
  28. ADDERALL [Concomitant]
     Active Substance: AMPHETAMINE ASPARTATE\AMPHETAMINE SULFATE\DEXTROAMPHETAMINE SACCHARATE\DEXTROAMPHETAMINE SULFATE
     Indication: Fatigue
     Dosage: 30 MG ONCE IN THE MORNING; ONGOING:YES?DAILY DOSE: 30 MILLIGRAM
     Route: 048
     Dates: start: 2010
  29. ADDERALL [Concomitant]
     Active Substance: AMPHETAMINE ASPARTATE\AMPHETAMINE SULFATE\DEXTROAMPHETAMINE SACCHARATE\DEXTROAMPHETAMINE SULFATE
     Indication: Fatigue
     Dosage: DAILY DOSE: 30 MILLIGRAM
     Route: 048
     Dates: start: 2016
  30. CANNABIS SATIVA SUBSP. INDICA TOP [Concomitant]
     Active Substance: CANNABIS SATIVA SUBSP. INDICA TOP
     Indication: Pain
     Dosage: ONGOING:YES
     Dates: start: 201904
  31. CANNABIS SATIVA SUBSP. INDICA TOP [Concomitant]
     Active Substance: CANNABIS SATIVA SUBSP. INDICA TOP
     Indication: Pain
     Dosage: ONCE OR TWICE A DAY FOR PAIN
  32. BETHANECHOL [Concomitant]
     Active Substance: BETHANECHOL
     Dosage: ONGOING:YES, THRICE A DAY?DAILY DOSE: 75 MILLIGRAM
  33. TAMSULOSIN [Concomitant]
     Active Substance: TAMSULOSIN
     Dosage: ONCE IN THE MORNING ONGOING:YES?DAILY DOSE: 4 MILLIGRAM
  34. Ester C [Concomitant]
     Dosage: ONGOING:YES?DAILY DOSE: 500 MILLIGRAM
  35. KRILL OIL [Concomitant]
     Active Substance: DIETARY SUPPLEMENT\KRILL OIL
     Route: 048
     Dates: start: 2016
  36. KRILL OIL [Concomitant]
     Active Substance: DIETARY SUPPLEMENT\KRILL OIL
     Dosage: ONCE A DAY;ONGOING YES?DAILY DOSE: 350 MILLIGRAM
  37. DALFAMPRIDINE [Concomitant]
     Active Substance: DALFAMPRIDINE
     Dosage: TWICE A DAY, 12 HOURS APART?DAILY DOSE: 20 MILLIGRAM
  38. RESTASIS [Concomitant]
     Active Substance: CYCLOSPORINE
     Dosage: EVERY 12 HOURS
  39. CRANBERRY [Concomitant]
     Active Substance: CRANBERRY
     Dosage: ONCE A DAY;ONGOING:YES
  40. CRANBERRY [Concomitant]
     Active Substance: CRANBERRY
  41. GABAPENTIN [Concomitant]
     Active Substance: GABAPENTIN
  42. GABAPENTIN [Concomitant]
     Active Substance: GABAPENTIN
     Dosage: ONGOING:YES
  43. OMEPRAZOLE [Concomitant]
     Active Substance: OMEPRAZOLE
     Indication: Gastrooesophageal reflux disease
     Dosage: DAILY DOSE: 40 MILLIGRAM
     Route: 048
     Dates: start: 2015
  44. OMEPRAZOLE [Concomitant]
     Active Substance: OMEPRAZOLE
     Indication: Gastrooesophageal reflux disease
     Dosage: DAILY DOSE: 40 MILLIGRAM
     Route: 048
     Dates: start: 2017
  45. PRIMIDONE [Concomitant]
     Active Substance: PRIMIDONE
     Indication: Tremor
     Dosage: TWICE A DAY?DAILY DOSE: 500 MILLIGRAM
     Route: 048
     Dates: start: 2015, end: 2017
  46. PRIMIDONE [Concomitant]
     Active Substance: PRIMIDONE
     Indication: Tremor
     Dosage: DAILY DOSE: 250 MILLIGRAM
     Route: 048
     Dates: start: 202001
  47. PRIMIDONE [Concomitant]
     Active Substance: PRIMIDONE
     Indication: Tremor
     Dosage: TWICE A DAY?DAILY DOSE: 500 MILLIGRAM
     Route: 048
  48. WELLBUTRIN [Concomitant]
     Active Substance: BUPROPION HYDROCHLORIDE
     Indication: Depression
     Dosage: ONGOING YES?DAILY DOSE: 300 MILLIGRAM
     Route: 048
     Dates: start: 2018
  49. WELLBUTRIN [Concomitant]
     Active Substance: BUPROPION HYDROCHLORIDE
     Indication: Depression
     Dosage: ONGOING YES?DAILY DOSE: 300 MILLIGRAM
     Route: 048
  50. LYRICA [Concomitant]
     Active Substance: PREGABALIN
     Indication: Neuralgia
     Dosage: DAILY DOSE: 300 MILLIGRAM
     Route: 048
     Dates: start: 2019
  51. LYRICA [Concomitant]
     Active Substance: PREGABALIN
     Indication: Neuralgia
     Dosage: TWICE A DAY?DAILY DOSE: 300 MILLIGRAM
     Route: 048
     Dates: start: 2020
  52. LYRICA [Concomitant]
     Active Substance: PREGABALIN
     Indication: Neuralgia
     Dosage: THRICE A DAY
     Route: 048
     Dates: start: 202001
  53. LYRICA [Concomitant]
     Active Substance: PREGABALIN
     Indication: Neuralgia
     Dosage: TWICE A DAY?DAILY DOSE: 300 MILLIGRAM
     Route: 048
     Dates: start: 202007
  54. LYRICA [Concomitant]
     Active Substance: PREGABALIN
     Indication: Neuralgia
     Dosage: 100 IN AM , 150 AT HS?DAILY DOSE: 400 MILLIGRAM
     Route: 048
  55. VITAMIN D3 [Concomitant]
     Active Substance: CHOLECALCIFEROL
     Dosage: DAILY DOSE: 1000 MILLIGRAM
     Route: 048
     Dates: start: 2009
  56. VITAMIN D3 [Concomitant]
     Active Substance: CHOLECALCIFEROL
     Dosage: DAILY DOSE: 2000 MILLIGRAM
     Route: 048
     Dates: start: 2009
  57. TYLENOL [Concomitant]
     Active Substance: ACETAMINOPHEN
     Dosage: THRICE A DAY
     Route: 048
     Dates: start: 201905
  58. VITAMIN B12 [Concomitant]
     Active Substance: CYANOCOBALAMIN
     Dosage: ONCE A DAY, COATED TABLET?DAILY DOSE: 1000 MILLIGRAM
  59. HERBALS\TURMERIC [Concomitant]
     Active Substance: HERBALS\TURMERIC
  60. NUEDEXTA [Concomitant]
     Active Substance: DEXTROMETHORPHAN HYDROBROMIDE\QUINIDINE SULFATE
     Dosage: DAILY DOSE: 20 MILLIGRAM
     Route: 048
     Dates: start: 2019
  61. MEMANTINE [Concomitant]
     Active Substance: MEMANTINE
     Dosage: TWICE A DAY?DAILY DOSE: 10 MILLIGRAM
     Route: 048
     Dates: start: 202010
  62. MEMANTINE [Concomitant]
     Active Substance: MEMANTINE
     Dosage: TWICE A DAY?DAILY DOSE: 20 MILLIGRAM
     Route: 048
     Dates: start: 202011
  63. AZO [Concomitant]
     Active Substance: PHENAZOPYRIDINE HYDROCHLORIDE
     Route: 048
     Dates: start: 2009
  64. OMEGA 3 [Concomitant]
     Active Substance: CAPSAICIN
     Dosage: STARTED BEFORE OCREVUS?DAILY DOSE: 350 MILLIGRAM
     Route: 048
     Dates: start: 2009
  65. LORAZEPAM [Concomitant]
     Active Substance: LORAZEPAM
     Indication: Anxiety
     Dosage: UP TO TWICE A DAY AS NEEDED, STARTED 2 YEARS AGO?DAILY DOSE: 1 MILLIGRAM
     Route: 048
     Dates: start: 202007
  66. ZYRTEC [Concomitant]
     Active Substance: CETIRIZINE HYDROCHLORIDE
     Indication: Hypersensitivity
     Dosage: DAILY DOSE: 10 MILLIGRAM
     Route: 048
     Dates: start: 2018
  67. BACLOFEN [Concomitant]
     Active Substance: BACLOFEN
     Indication: Depression
     Dosage: STARTED AFTER OCREVUS?DAILY DOSE: 300 MILLIGRAM
     Route: 048
  68. BACLOFEN [Concomitant]
     Active Substance: BACLOFEN
     Indication: Depression
     Dosage: TAKES ONLY AT NIGHT; STARTED AFTER OCREVUS, THRICE A DAY?DAILY DOSE: 60 MILLIGRAM
     Route: 048
  69. KRILL OIL [Concomitant]
     Active Substance: DIETARY SUPPLEMENT\KRILL OIL
     Dosage: STARTED BEFORE OCREVUS?DAILY DOSE: 350 MILLIGRAM
     Route: 048
  70. XIIDRA [Concomitant]
     Active Substance: LIFITEGRAST
     Indication: Dry eye
     Dosage: TAKES ONLY AT NIGHT, OPHTHALMIC TWICE A DAY
     Dates: start: 2021
  71. PROPRANOLOL [Concomitant]
     Active Substance: PROPRANOLOL HYDROCHLORIDE
  72. VITAMIN C [Concomitant]
     Active Substance: ASCORBIC ACID

REACTIONS (4)
  - Nausea [Recovered/Resolved]
  - Drug ineffective [Not Recovered/Not Resolved]
  - Breast mass [Not Recovered/Not Resolved]
  - Urinary tract infection [Recovered/Resolved]

NARRATIVE: CASE EVENT DATE: 20230301
